FAERS Safety Report 5358348-2 (Version None)
Quarter: 2007Q2

REPORT INFORMATION
  Report Type: 
  Country: None (occurrence: None)
  Receive Date: 20070613
  Receipt Date: 20070613
  Transmission Date: 20071010
  Serious: Yes (Other)
  Sender: FDA-Public Use
  Company Number: None

PATIENT
  Sex: Female
  Weight: 70.3075 kg

DRUGS (1)
  1. KINERET [Suspect]
     Indication: RHEUMATOID ARTHRITIS
     Dosage: 100 MG SQ QD
     Route: 058
     Dates: start: 20020610, end: 20070206

REACTIONS (2)
  - BONE DEBRIDEMENT [None]
  - OSTEOMYELITIS [None]
